FAERS Safety Report 7000941-5 (Version None)
Quarter: 2010Q3

REPORT INFORMATION
  Report Type: 
  Country: None (occurrence: None)
  Receive Date: 20100920
  Receipt Date: 20100914
  Transmission Date: 20110219
  Serious: Yes (Death, Hospitalization)
  Sender: FDA-Public Use
  Company Number: US-JNJFOC-20100800033

PATIENT
  Age: 9 Decade
  Sex: Male
  Weight: 88.45 kg

DRUGS (14)
  1. RISPERDAL [Suspect]
     Indication: DEMENTIA WITH LEWY BODIES
     Route: 048
  2. RISPERDAL [Suspect]
     Route: 048
  3. CITRUCEL [Concomitant]
     Indication: CONSTIPATION
     Route: 048
  4. COLACE [Concomitant]
     Indication: CONSTIPATION
     Route: 048
  5. TYLENOL [Concomitant]
     Indication: PAIN MANAGEMENT
     Route: 048
  6. ASPIRIN [Concomitant]
     Indication: PAIN MANAGEMENT
     Route: 065
  7. NORVASC [Concomitant]
     Indication: BLOOD PRESSURE
     Route: 048
  8. UNKNOWN MEDICATION [Concomitant]
     Indication: PRODUCT USED FOR UNKNOWN INDICATION
     Route: 048
  9. ARICEPT [Concomitant]
     Indication: DEMENTIA
     Route: 048
  10. ZANTAC [Concomitant]
     Indication: GASTRIC DISORDER
     Route: 048
  11. FOSAMAX [Concomitant]
     Indication: BONE DISORDER
     Route: 065
  12. OMEGA FISH OILS [Concomitant]
     Indication: BLOOD CHOLESTEROL
     Route: 065
  13. LUTEIN [Concomitant]
     Indication: EYE DISORDER
     Route: 065
  14. NAMENDA [Concomitant]
     Indication: DEMENTIA ALZHEIMER'S TYPE
     Route: 048

REACTIONS (8)
  - AGGRESSION [None]
  - APHAGIA [None]
  - ASPIRATION [None]
  - BODY TEMPERATURE DECREASED [None]
  - DEATH [None]
  - DEHYDRATION [None]
  - OXYGEN SATURATION DECREASED [None]
  - SOMNOLENCE [None]
